FAERS Safety Report 7461650-1 (Version None)
Quarter: 2011Q2

REPORT INFORMATION
  Report Type: 
  Country: None (occurrence: None)
  Receive Date: 20110506
  Receipt Date: 20110420
  Transmission Date: 20111010
  Serious: Yes (Hospitalization, Disabling, Other)
  Sender: FDA-Public Use
  Company Number: JP-MILLENNIUM PHARMACEUTICALS, INC.-2011-00651

PATIENT

DRUGS (16)
  1. VELCADE [Suspect]
     Indication: MULTIPLE MYELOMA
     Dosage: 2 MG, UNK
     Route: 042
     Dates: start: 20110214, end: 20110214
  2. AMARYL [Suspect]
     Indication: DIABETES MELLITUS
     Dosage: 50 MG, UNK
     Route: 048
     Dates: start: 20110207, end: 20110214
  3. PURSENNID                          /00142207/ [Concomitant]
     Indication: CONSTIPATION
     Dosage: 24 MG, UNK
     Route: 048
     Dates: start: 20110131, end: 20110215
  4. MAGLAX [Concomitant]
     Indication: CONSTIPATION
     Dosage: 990 MG, UNK
     Route: 048
     Dates: start: 20110207, end: 20110215
  5. MORPHINE HCL ELIXIR [Concomitant]
     Indication: ULCER
     Dosage: 30 MG, UNK
     Dates: start: 20110213, end: 20110216
  6. NOVORAPID [Concomitant]
     Indication: DIABETES MELLITUS
     Dosage: 15 IU, UNK
     Route: 058
     Dates: start: 20110214, end: 20110215
  7. MUCOSTA [Concomitant]
     Indication: PROPHYLAXIS
     Dosage: 300 MG, UNK
     Route: 048
     Dates: start: 20110201, end: 20110215
  8. ALKERAN [Concomitant]
     Indication: MULTIPLE MYELOMA
     Dosage: 12 MG, UNK
     Route: 048
     Dates: start: 20110214, end: 20110217
  9. LOXONIN                            /00890701/ [Concomitant]
     Indication: PAIN
     Dosage: 180 MG, UNK
     Route: 048
     Dates: start: 20110201, end: 20110215
  10. OMEPRAL                            /00661201/ [Concomitant]
     Indication: PROPHYLAXIS
     Dosage: 20 MG, UNK
     Route: 048
     Dates: start: 20110201, end: 20110215
  11. PREDONINE                          /00016201/ [Concomitant]
     Indication: MULTIPLE MYELOMA
     Dosage: 60 MG, UNK
     Route: 048
     Dates: start: 20110214, end: 20110217
  12. VFEND [Suspect]
     Indication: PROPHYLAXIS
     Dosage: 400 MG, UNK
     Route: 048
     Dates: start: 20110207, end: 20110216
  13. DEXAMETHASONE [Concomitant]
     Dosage: UNK
     Route: 048
     Dates: start: 20110131, end: 20110203
  14. VALTREX [Concomitant]
     Indication: PROPHYLAXIS
     Dosage: 500 MG, UNK
     Route: 048
     Dates: start: 20110214, end: 20110218
  15. JANUVIA [Suspect]
     Indication: DIABETES MELLITUS
     Dosage: 50 MG, UNK
     Route: 048
     Dates: start: 20110208, end: 20110216
  16. BAKTAR [Concomitant]
     Indication: PROPHYLAXIS
     Dosage: UNK
     Route: 048
     Dates: start: 20110131, end: 20110215

REACTIONS (7)
  - PULMONARY OEDEMA [None]
  - HYPOTENSION [None]
  - DYSPHAGIA [None]
  - BRONCHITIS [None]
  - BRAIN NATRIURETIC PEPTIDE INCREASED [None]
  - HYPOGLYCAEMIA [None]
  - PLEURAL EFFUSION [None]
